FAERS Safety Report 10680326 (Version 3)
Quarter: 2017Q2

REPORT INFORMATION
  Report Type: Spontaneous
  Country: US (occurrence: US)
  Receive Date: 20141229
  Receipt Date: 20170503
  Transmission Date: 20170829
  Serious: Yes (Death, Hospitalization)
  Sender: FDA-Public Use
  Company Number: US-SA-2013SA132471

PATIENT
  Age: 76 Year

DRUGS (3)
  1. PLAVIX [Suspect]
     Active Substance: CLOPIDOGREL BISULFATE
     Indication: STENT PLACEMENT
     Route: 065
     Dates: start: 20040722, end: 20120424
  2. PLAVIX [Suspect]
     Active Substance: CLOPIDOGREL BISULFATE
     Indication: ACUTE CORONARY SYNDROME
     Route: 065
     Dates: start: 20040722, end: 20120424
  3. ASPIRIN. [Concomitant]
     Active Substance: ASPIRIN
     Dates: start: 20040722, end: 20120624

REACTIONS (5)
  - Gait disturbance [Unknown]
  - Gastrointestinal haemorrhage [Unknown]
  - Death [Fatal]
  - Asthenia [Unknown]
  - Haemorrhage [Unknown]

NARRATIVE: CASE EVENT DATE: 201010
